FAERS Safety Report 12398548 (Version 1)
Quarter: 2016Q2

REPORT INFORMATION
  Report Type: Spontaneous
  Country: US (occurrence: US)
  Receive Date: 20160524
  Receipt Date: 20160524
  Transmission Date: 20160815
  Serious: Yes (Hospitalization, Other)
  Sender: FDA-Public Use
  Company Number: US-BAYER-2016-096661

PATIENT
  Age: 33 Year
  Sex: Female
  Weight: 136.5 kg

DRUGS (1)
  1. MIRENA [Suspect]
     Active Substance: LEVONORGESTREL
     Indication: MENORRHAGIA
     Dosage: 20 MCG/24HR, CONT
     Route: 015
     Dates: start: 201005, end: 201501

REACTIONS (9)
  - Depression [Not Recovered/Not Resolved]
  - Suicidal ideation [Recovering/Resolving]
  - Mood swings [Recovering/Resolving]
  - Weight increased [Not Recovered/Not Resolved]
  - Panic attack [Recovering/Resolving]
  - Amenorrhoea [None]
  - Anxiety [Not Recovered/Not Resolved]
  - Asthenia [Recovering/Resolving]
  - Irritability [Recovering/Resolving]

NARRATIVE: CASE EVENT DATE: 201005
